FAERS Safety Report 6836958-0 (Version None)
Quarter: 2010Q3

REPORT INFORMATION
  Report Type: 
  Country: None (occurrence: None)
  Receive Date: 20100713
  Receipt Date: 20070503
  Transmission Date: 20110219
  Serious: No
  Sender: FDA-Public Use
  Company Number: US-PFIZER INC-2007036238

PATIENT
  Sex: Male
  Weight: 90.909 kg

DRUGS (12)
  1. CHANTIX [Suspect]
     Indication: SMOKING CESSATION THERAPY
     Dates: start: 20070423
  2. NORVASC [Concomitant]
  3. AVAPRO [Concomitant]
  4. MONOPRIL [Concomitant]
  5. LABETALOL HYDROCHLORIDE [Concomitant]
  6. PROBENECID [Concomitant]
  7. INDAPAMIDE [Concomitant]
  8. NIACIN [Concomitant]
  9. ACETYLSALICYLIC ACID [Concomitant]
  10. VITAMIN A [Concomitant]
  11. VITAMIN E [Concomitant]
  12. FIBERCON [Concomitant]

REACTIONS (3)
  - ABNORMAL DREAMS [None]
  - ANXIETY [None]
  - INSOMNIA [None]
